FAERS Safety Report 9885361 (Version 1)
Quarter: 2014Q1

REPORT INFORMATION
  Report Type: Spontaneous
  Country: US (occurrence: US)
  Receive Date: 20140210
  Receipt Date: 20140210
  Transmission Date: 20141002
  Serious: No
  Sender: FDA-Public Use
  Company Number: US-PFIZER INC-2014036816

PATIENT
  Sex: Female

DRUGS (2)
  1. LYRICA [Suspect]
     Indication: FIBROMYALGIA
     Dosage: UNK
  2. LYRICA [Suspect]
     Dosage: 150 MG, 2X/DAY

REACTIONS (5)
  - Dizziness [Unknown]
  - Asthenia [Unknown]
  - Lip swelling [Unknown]
  - Dyspnoea [Unknown]
  - Speech disorder [Unknown]
